FAERS Safety Report 9508895 (Version 1)
Quarter: 2013Q3

REPORT INFORMATION
  Report Type: Spontaneous
  Country: US (occurrence: US)
  Receive Date: 20130909
  Receipt Date: 20130909
  Transmission Date: 20140515
  Serious: No
  Sender: FDA-Public Use
  Company Number: US-BRISTOL-MYERS SQUIBB COMPANY-19059724

PATIENT
  Age: 24 Year
  Sex: Male

DRUGS (2)
  1. ABILIFY INJECTION [Suspect]
     Indication: SCHIZOPHRENIA
     Route: 030
     Dates: start: 20130507
  2. ABILIFY [Concomitant]
     Route: 048
     Dates: end: 20130521

REACTIONS (4)
  - Drug ineffective [Unknown]
  - Paranoia [Unknown]
  - Irritability [Unknown]
  - Communication disorder [Unknown]
